FAERS Safety Report 5414873-7 (Version None)
Quarter: 2007Q3

REPORT INFORMATION
  Report Type: 
  Country: None (occurrence: None)
  Receive Date: 20070815
  Receipt Date: 20070810
  Transmission Date: 20080115
  Serious: Yes (Disabling, Other)
  Sender: FDA-Public Use
  Company Number: PHNU2007DE02815

PATIENT
  Sex: Female

DRUGS (6)
  1. AZOPT [Concomitant]
     Route: 065
  2. LEVOTHYROXINE SODIUM [Concomitant]
     Route: 065
  3. BISOPROLOL [Concomitant]
     Route: 065
  4. AREDIA [Suspect]
     Indication: METASTASES TO BONE
     Route: 042
     Dates: start: 19960712
  5. ZOMETA [Suspect]
     Indication: METASTASES TO BONE
     Route: 042
     Dates: start: 20030523
  6. BONDRONAT [Suspect]
     Indication: METASTASES TO BONE
     Route: 042
     Dates: start: 20050404

REACTIONS (7)
  - DENTAL FISTULA [None]
  - INFLAMMATION [None]
  - ORAL DISORDER [None]
  - ORAL SURGERY [None]
  - OSTEONECROSIS [None]
  - PAIN [None]
  - PURULENCE [None]
